FAERS Safety Report 7940664-9 (Version None)
Quarter: 2011Q4

REPORT INFORMATION
  Report Type: 
  Country: None (occurrence: None)
  Receive Date: 20111114
  Receipt Date: 20110307
  Transmission Date: 20120403
  Serious: Yes (Death)
  Sender: FDA-Public Use
  Company Number: 2010S1001773

PATIENT
  Age: 33 Year
  Sex: Female

DRUGS (3)
  1. ERTAPENEM [Concomitant]
  2. CASPOFUNGIN ACETATE [Concomitant]
  3. CUBICIN [Suspect]
     Indication: ENTEROCOCCAL INFECTION
     Dosage: 8 MG/KG; Q48H;

REACTIONS (4)
  - SEPSIS [None]
  - ESCHERICHIA BACTERAEMIA [None]
  - ENTEROCOCCAL BACTERAEMIA [None]
  - DEATH [None]
